FAERS Safety Report 8432623-7 (Version None)
Quarter: 2012Q2

REPORT INFORMATION
  Report Type: 
  Country: None (occurrence: None)
  Receive Date: 20120613
  Receipt Date: 20120606
  Transmission Date: 20120825
  Serious: Yes (Disabling)
  Sender: FDA-Public Use
  Company Number: US-CELGENEUS-163-21880-12061247

PATIENT
  Sex: Male
  Weight: 59.928 kg

DRUGS (9)
  1. DECADRON [Concomitant]
     Dosage: 40 MILLIGRAM
     Route: 065
  2. RANITIDINE [Concomitant]
     Dosage: 75 MILLIGRAM
     Route: 065
  3. ASPIRIN [Concomitant]
     Dosage: 325 MILLIGRAM
     Route: 065
  4. BENZOATE [Concomitant]
     Dosage: 100 MILLIGRAM
     Route: 065
  5. EXFORGE [Concomitant]
     Dosage: 5-320MG
     Route: 065
  6. NASONEX [Concomitant]
     Dosage: 2 SPRAYS
     Route: 065
  7. PERCOCET [Concomitant]
     Dosage: 5-325MG
     Route: 048
  8. COREG CR [Concomitant]
     Dosage: 40 MILLIGRAM
     Route: 065
  9. REVLIMID [Suspect]
     Indication: MULTIPLE MYELOMA
     Dosage: 15 MILLIGRAM
     Route: 048
     Dates: start: 20120513, end: 20120602

REACTIONS (2)
  - WALKING DISABILITY [None]
  - RASH [None]
